FAERS Safety Report 16637857 (Version 1)
Quarter: 2019Q3

REPORT INFORMATION
  Report Type: Report from Study
  Country: CA (occurrence: CA)
  Receive Date: 20190726
  Receipt Date: 20190726
  Transmission Date: 20191004
  Serious: Yes (Hospitalization, Other)
  Sender: FDA-Public Use
  Company Number: CA-JNJFOC-20190308766

PATIENT
  Age: 60 Year
  Sex: Female
  Weight: 88.7 kg

DRUGS (9)
  1. REMICADE [Suspect]
     Active Substance: INFLIXIMAB
     Indication: PSORIATIC ARTHROPATHY
     Route: 042
     Dates: start: 20151126
  2. BUPROPION. [Concomitant]
     Active Substance: BUPROPION
     Route: 048
  3. PRISTIQ EXTENDED-RELEASE [Concomitant]
     Active Substance: DESVENLAFAXINE SUCCINATE
     Route: 048
  4. REMICADE [Suspect]
     Active Substance: INFLIXIMAB
     Indication: RHEUMATOID ARTHRITIS
     Route: 042
     Dates: start: 20101014
  5. CELECOXIB. [Concomitant]
     Active Substance: CELECOXIB
     Route: 048
  6. GABAPENTIN. [Concomitant]
     Active Substance: GABAPENTIN
     Route: 048
  7. BUPROPION. [Concomitant]
     Active Substance: BUPROPION
     Route: 048
  8. REMICADE [Suspect]
     Active Substance: INFLIXIMAB
     Indication: PSORIASIS
     Dosage: STRENGTH = 400 MG
     Route: 042
     Dates: start: 20101014
  9. PANTOLOC [Concomitant]
     Active Substance: PANTOPRAZOLE SODIUM
     Route: 048

REACTIONS (6)
  - Renal cancer [Recovering/Resolving]
  - Psoriasis [Not Recovered/Not Resolved]
  - Bronchitis [Recovering/Resolving]
  - Neck pain [Not Recovered/Not Resolved]
  - Breast mass [Unknown]
  - Postoperative abscess [Unknown]

NARRATIVE: CASE EVENT DATE: 2019
